FAERS Safety Report 5284085-9 (Version None)
Quarter: 2007Q1

REPORT INFORMATION
  Report Type: 
  Country: None (occurrence: None)
  Receive Date: 20070327
  Receipt Date: 20070320
  Transmission Date: 20070707
  Serious: No
  Sender: FDA-Public Use
  Company Number: 238552

PATIENT
  Age: 76 Year
  Sex: Female
  Weight: 44.7 kg

DRUGS (3)
  1. AVASTIN [Suspect]
     Indication: DRUG USE FOR UNKNOWN INDICATION
     Dates: start: 20061102
  2. GEMCITABINE [Concomitant]
  3. CARBOPLATIN [Concomitant]

REACTIONS (3)
  - HEART RATE INCREASED [None]
  - HYDROCEPHALUS [None]
  - HYPOTENSION [None]
